FAERS Safety Report 18277900 (Version 1)
Quarter: 2020Q3

REPORT INFORMATION
  Report Type: Spontaneous
  Country: US (occurrence: US)
  Receive Date: 20200917
  Receipt Date: 20200917
  Transmission Date: 20201103
  Serious: Yes (Disabling)
  Sender: FDA-Public Use
  Company Number: None

PATIENT
  Age: 60 Year
  Sex: Female
  Weight: 65.25 kg

DRUGS (8)
  1. FOSAMAX [Suspect]
     Active Substance: ALENDRONATE SODIUM
  2. NASONEX [Concomitant]
     Active Substance: MOMETASONE FUROATE
  3. VITAMIN D?2000 [Concomitant]
  4. ALLEGRA [Concomitant]
     Active Substance: FEXOFENADINE HYDROCHLORIDE
  5. PROLIA [Suspect]
     Active Substance: DENOSUMAB
     Indication: OSTEOPOROSIS
     Dosage: ?          QUANTITY:1 INJECTION(S);OTHER FREQUENCY:EVERY 6 MONTHS;?
     Route: 058
     Dates: start: 20200317, end: 20200317
  6. VITAMIN C AND E [Concomitant]
     Active Substance: .ALPHA.-TOCOPHEROL\ASCORBIC ACID
  7. CALCIUM WITH VITAMIN D [Concomitant]
     Active Substance: CALCIUM\VITAMIN D
  8. PROPRANOLOL [Concomitant]
     Active Substance: PROPRANOLOL HYDROCHLORIDE

REACTIONS (11)
  - Arthralgia [None]
  - Gingival discomfort [None]
  - Eating disorder [None]
  - Speech disorder [None]
  - Pain in jaw [None]
  - Night sweats [None]
  - Blood cholesterol increased [None]
  - Myalgia [None]
  - Fatigue [None]
  - Gingival swelling [None]
  - Gingival bleeding [None]

NARRATIVE: CASE EVENT DATE: 20200915
